FAERS Safety Report 17856920 (Version 3)
Quarter: 2020Q4

REPORT INFORMATION
  Report Type: Spontaneous
  Country: US (occurrence: US)
  Receive Date: 20200603
  Receipt Date: 20201201
  Transmission Date: 20210113
  Serious: Yes (Other)
  Sender: FDA-Public Use
  Company Number: US-COOPERSURGICAL, INC.-US-2020CPS001241

PATIENT
  Age: 33 Year
  Sex: Female
  Weight: 63.95 kg

DRUGS (1)
  1. PARAGARD T 380A [Suspect]
     Active Substance: COPPER
     Indication: CONTRACEPTION
     Dosage: UNK
     Route: 015
     Dates: start: 20160525, end: 202006

REACTIONS (6)
  - Ovarian cyst [Not Recovered/Not Resolved]
  - Complication of device removal [Recovered/Resolved]
  - Pain [Unknown]
  - Device issue [Recovered/Resolved]
  - Device breakage [Recovered/Resolved]
  - Foreign body in reproductive tract [Recovered/Resolved]

NARRATIVE: CASE EVENT DATE: 20200328
